FAERS Safety Report 19430948 (Version 1)
Quarter: 2021Q2

REPORT INFORMATION
  Report Type: Report from Study
  Country: US (occurrence: US)
  Receive Date: 20210617
  Receipt Date: 20210617
  Transmission Date: 20210717
  Serious: Yes (Hospitalization)
  Sender: FDA-Public Use
  Company Number: US-MYLANLABS-2020M1098448

PATIENT
  Age: 60 Year
  Sex: Male

DRUGS (2)
  1. WHISPERJECT? AUTOINJECTOR [Suspect]
     Active Substance: DEVICE
     Indication: MULTIPLE SCLEROSIS
     Dosage: UNK
  2. GLATIRAMER ACETATE INJECTION [Suspect]
     Active Substance: GLATIRAMER ACETATE
     Indication: RELAPSING-REMITTING MULTIPLE SCLEROSIS
     Dosage: 40 MILLIGRAM, 3XW (3XS/WEEK)
     Route: 058

REACTIONS (5)
  - Injection site pain [Unknown]
  - Injection site haemorrhage [Unknown]
  - Injection site swelling [Not Recovered/Not Resolved]
  - Near death experience [Unknown]
  - Injection site pruritus [Not Recovered/Not Resolved]

NARRATIVE: CASE EVENT DATE: 20210119
